FAERS Safety Report 6149936-4 (Version None)
Quarter: 2009Q2

REPORT INFORMATION
  Report Type: 
  Country: None (occurrence: None)
  Receive Date: 20090409
  Receipt Date: 20090401
  Transmission Date: 20091009
  Serious: Yes (Life-Threatening, Hospitalization, Congenital Anomaly)
  Sender: FDA-Public Use
  Company Number: A0640662A

PATIENT
  Sex: Female
  Weight: 2.6 kg

DRUGS (8)
  1. PAXIL [Suspect]
     Indication: DEPRESSION
     Dosage: 20MG PER DAY
     Dates: start: 20011019, end: 20021001
  2. VITAMIN AND MINERAL PRENATAL SUPPLEMENT W/ FOLIC ACID CAP [Concomitant]
     Indication: PREGNANCY
     Dates: start: 20010101
  3. ALEVE [Concomitant]
     Indication: PAIN
     Dates: start: 20000101
  4. ADVIL [Concomitant]
     Indication: PAIN
     Dates: start: 20000101
  5. ZANTAC [Concomitant]
     Dosage: 50MG PER DAY
     Dates: start: 20011019
  6. IBUPROFEN [Concomitant]
     Indication: PAIN
     Dates: start: 20000101
  7. WELLBUTRIN SR [Concomitant]
     Indication: DEPRESSION
     Dosage: 100MG PER DAY
     Dates: start: 20011201
  8. RANITIDINE [Concomitant]
     Dosage: 150MG PER DAY
     Dates: start: 20011124

REACTIONS (26)
  - ATRIAL SEPTAL DEFECT [None]
  - BUNDLE BRANCH BLOCK RIGHT [None]
  - CARDIAC FAILURE CONGESTIVE [None]
  - CARDIAC MURMUR [None]
  - COLLAPSE OF LUNG [None]
  - DEVELOPMENTAL DELAY [None]
  - DIAPHRAGMATIC PARALYSIS [None]
  - DRUG EXPOSURE DURING PREGNANCY [None]
  - FALLOT'S TETRALOGY [None]
  - INJURY [None]
  - LUNG DISORDER [None]
  - NERVE INJURY [None]
  - PAIN [None]
  - PERSISTENT FOETAL CIRCULATION [None]
  - PULMONARY ARTERIAL HYPERTENSION [None]
  - PULMONARY ARTERIAL PRESSURE INCREASED [None]
  - PULMONARY ARTERY STENOSIS [None]
  - PULMONARY HAEMORRHAGE [None]
  - PULMONARY VASCULAR DISORDER [None]
  - RESPIRATORY ARREST [None]
  - RESPIRATORY FAILURE [None]
  - RIGHT VENTRICULAR SYSTOLIC PRESSURE INCREASED [None]
  - TACHYPNOEA [None]
  - TRICUSPID VALVE INCOMPETENCE [None]
  - VENTRICULAR HYPERTROPHY [None]
  - VENTRICULAR SEPTAL DEFECT [None]
